FAERS Safety Report 5741833-9 (Version None)
Quarter: 2008Q2

REPORT INFORMATION
  Report Type: 
  Country: None (occurrence: None)
  Receive Date: 20080519
  Receipt Date: 20080130
  Transmission Date: 20081010
  Serious: No
  Sender: FDA-Public Use
  Company Number: US-BAYER-200813087NA

PATIENT
  Sex: Female

DRUGS (1)
  1. MIRENA [Suspect]
     Indication: DRUG USE FOR UNKNOWN INDICATION
     Route: 015
     Dates: start: 20060101

REACTIONS (6)
  - CONTACT LENS INTOLERANCE [None]
  - DRY SKIN [None]
  - ERYTHEMA OF EYELID [None]
  - EYELID IRRITATION [None]
  - EYELID OEDEMA [None]
  - HYPERSENSITIVITY [None]
